FAERS Safety Report 10576003 (Version 1)
Quarter: 2014Q4

REPORT INFORMATION
  Report Type: Spontaneous
  Country: US (occurrence: None)
  Receive Date: 20141110
  Receipt Date: 20141110
  Transmission Date: 20150529
  Serious: Yes (Life-Threatening, Hospitalization)
  Sender: FDA-Public Use
  Company Number: None

PATIENT
  Age: 78 Year
  Sex: Male
  Weight: 85.8 kg

DRUGS (1)
  1. OXALIPLATIN. [Suspect]
     Active Substance: OXALIPLATIN
     Indication: COLON CANCER
     Dosage: OTH
     Route: 042
     Dates: start: 20140108, end: 20140520

REACTIONS (9)
  - Tachypnoea [None]
  - Streptococcal bacteraemia [None]
  - Hypotension [None]
  - Chills [None]
  - Pyrexia [None]
  - Unresponsive to stimuli [None]
  - Tachycardia [None]
  - Infusion related reaction [None]
  - Wheezing [None]

NARRATIVE: CASE EVENT DATE: 20140122
